FAERS Safety Report 19884746 (Version 1)
Quarter: 2021Q3

REPORT INFORMATION
  Report Type: Spontaneous
  Country: US (occurrence: US)
  Receive Date: 20210926
  Receipt Date: 20210926
  Transmission Date: 20211014
  Serious: Yes (Hospitalization)
  Sender: FDA-Public Use
  Company Number: None

PATIENT
  Age: 73 Year
  Sex: Male
  Weight: 72.48 kg

DRUGS (9)
  1. CAPECITABINE 500MG TABLET [Suspect]
     Active Substance: CAPECITABINE
     Indication: COLON CANCER
     Dosage: 2000MG Q12HX2W, 1WOF
     Route: 048
     Dates: start: 20210810
  2. PROCHLORPERAZINE. [Concomitant]
     Active Substance: PROCHLORPERAZINE
  3. PROCTZONE?HC [Concomitant]
  4. ASPIRIN. [Concomitant]
     Active Substance: ASPIRIN
  5. WARFARIN [Concomitant]
     Active Substance: WARFARIN
  6. SOTALOL. [Concomitant]
     Active Substance: SOTALOL
  7. LORAZEPAM. [Concomitant]
     Active Substance: LORAZEPAM
  8. LOSARTAN?HCTZ [Concomitant]
     Active Substance: HYDROCHLOROTHIAZIDE\LOSARTAN
  9. XELODA [Concomitant]
     Active Substance: CAPECITABINE

REACTIONS (1)
  - Gastrointestinal infection [None]
